FAERS Safety Report 9291431 (Version 2)
Quarter: 2013Q2

REPORT INFORMATION
  Report Type: Report from Study
  Country: US (occurrence: US)
  Receive Date: 20130515
  Receipt Date: 20130523
  Transmission Date: 20140414
  Serious: Yes (Hospitalization, Other)
  Sender: FDA-Public Use
  Company Number: US-ABBOTT-13P-163-1088225-00

PATIENT
  Age: 39 Year
  Sex: Female
  Weight: 112.59 kg

DRUGS (9)
  1. HUMIRA [Suspect]
     Indication: COLITIS ULCERATIVE
     Dates: start: 20121112, end: 20130418
  2. HUMIRA [Suspect]
     Dates: end: 20130318
  3. AZATHIOPRINE [Concomitant]
     Dosage: 150 MG DAILY
     Route: 048
  4. AZATHIOPRINE [Concomitant]
     Dosage: 200 MG DAILY
     Route: 048
  5. PREDNISONE [Concomitant]
     Indication: PRODUCT USED FOR UNKNOWN INDICATION
     Dosage: 20 MG DAILY
     Route: 048
  6. ASACOL [Concomitant]
     Indication: PRODUCT USED FOR UNKNOWN INDICATION
     Dosage: IN THE MORNING AND AT HOUR OF SLEEP
     Route: 048
  7. ZANTAC [Concomitant]
     Indication: PRODUCT USED FOR UNKNOWN INDICATION
     Dosage: AT HOUR OF SLEEP
     Route: 048
  8. LASIX [Concomitant]
     Indication: SYNOVIAL CYST
     Dosage: 20 MG DAILY
     Route: 048
  9. HCTZ [Concomitant]
     Indication: MIGRAINE PROPHYLAXIS
     Dosage: 25 MG DAILY
     Route: 048

REACTIONS (5)
  - Haemorrhage [Not Recovered/Not Resolved]
  - Colitis [Unknown]
  - Pain [Unknown]
  - Drug ineffective [Unknown]
  - Diarrhoea [Unknown]
